FAERS Safety Report 17573734 (Version 2)
Quarter: 2022Q3

REPORT INFORMATION
  Report Type: Report from Study
  Country: US (occurrence: US)
  Receive Date: 20200323
  Receipt Date: 20220726
  Transmission Date: 20221026
  Serious: Yes (Hospitalization)
  Sender: FDA-Public Use
  Company Number: US-BAUSCH-BL-2019-066005

PATIENT
  Age: 58 Year
  Sex: Female

DRUGS (3)
  1. XIFAXAN [Suspect]
     Active Substance: RIFAXIMIN
     Indication: Hepatic encephalopathy
     Dosage: STARTED ABOUT 2 WEEKS AGO
     Route: 048
     Dates: start: 201912
  2. XIFAXAN [Suspect]
     Active Substance: RIFAXIMIN
     Route: 048
  3. LACTULOSE [Suspect]
     Active Substance: LACTULOSE
     Indication: Product used for unknown indication
     Route: 065

REACTIONS (4)
  - Blood glucose increased [Unknown]
  - Fungal infection [Unknown]
  - Product prescribing error [Unknown]
  - Inappropriate schedule of product administration [Unknown]

NARRATIVE: CASE EVENT DATE: 20190101
